FAERS Safety Report 12491243 (Version 4)
Quarter: 2017Q1

REPORT INFORMATION
  Report Type: Report from Study
  Country: FR (occurrence: FR)
  Receive Date: 20160623
  Receipt Date: 20170110
  Transmission Date: 20170428
  Serious: Yes (Hospitalization, Other)
  Sender: FDA-Public Use
  Company Number: FR-ASTRAZENECA-2016SE64194

PATIENT
  Age: 811 Month
  Sex: Female

DRUGS (5)
  1. INNOHEP [Interacting]
     Active Substance: TINZAPARIN SODIUM
     Indication: PULMONARY EMBOLISM
     Dosage: 0.6ML UNKNOWN
     Route: 065
     Dates: start: 20160317
  2. PALBOCICLIB [Suspect]
     Active Substance: PALBOCICLIB
     Indication: BREAST CANCER METASTATIC
     Route: 048
     Dates: start: 20160406, end: 20160415
  3. XGEVA [Concomitant]
     Active Substance: DENOSUMAB
     Dates: start: 201503
  4. PALBOCICLIB [Suspect]
     Active Substance: PALBOCICLIB
     Indication: BREAST CANCER METASTATIC
     Route: 048
     Dates: start: 20161109, end: 20161115
  5. FASLODEX [Suspect]
     Active Substance: FULVESTRANT
     Indication: HORMONE THERAPY
     Route: 030
     Dates: start: 201603

REACTIONS (8)
  - Rectal haemorrhage [Recovered/Resolved]
  - Disease progression [Unknown]
  - Infection [Unknown]
  - Drug interaction [Unknown]
  - Haematemesis [Recovered/Resolved]
  - Intestinal fistula [Recovered/Resolved]
  - Neutropenia [Recovered/Resolved]
  - Anaemia [Recovered/Resolved]

NARRATIVE: CASE EVENT DATE: 20160414
